FAERS Safety Report 7278869-5 (Version None)
Quarter: 2010Q4

REPORT INFORMATION
  Report Type: 
  Country: None (occurrence: None)
  Receive Date: 20101206
  Receipt Date: 20101110
  Transmission Date: 20110411
  Serious: Yes (Other)
  Sender: FDA-Public Use
  Company Number: 2010SP059718

PATIENT
  Age: 33 Year
  Sex: Female

DRUGS (1)
  1. SAPHRIS [Suspect]
     Indication: PRODUCT USED FOR UNKNOWN INDICATION
     Dosage: 10 MG;QD;SL
     Route: 060
     Dates: start: 20101103, end: 20101110

REACTIONS (8)
  - CONVULSION [None]
  - FATIGUE [None]
  - INCREASED TENDENCY TO BRUISE [None]
  - JOINT SWELLING [None]
  - PARAESTHESIA [None]
  - SYNCOPE [None]
  - TINNITUS [None]
  - URTICARIA [None]
